FAERS Safety Report 7469460-6 (Version None)
Quarter: 2011Q2

REPORT INFORMATION
  Report Type: 
  Country: None (occurrence: None)
  Receive Date: 20110510
  Receipt Date: 20110506
  Transmission Date: 20111010
  Serious: Yes (Life-Threatening, Hospitalization)
  Sender: FDA-Public Use
  Company Number: US-B.I. PHARMACEUTICALS,INC./RIDGEFIELD-2011-BP-09801BP

PATIENT
  Age: 68 Year
  Sex: Male
  Weight: 90.72 kg

DRUGS (10)
  1. NIASPAN [Concomitant]
     Dosage: 1000 MG
  2. ASPIRIN [Concomitant]
     Dosage: 81 MG
  3. PRADAXA [Suspect]
     Indication: ATRIAL FIBRILLATION
     Dosage: 300 MG
     Dates: start: 20110217, end: 20110407
  4. LISINOPRIL [Concomitant]
     Dosage: 10 MG
  5. LASIX [Concomitant]
     Dosage: 40 MG
  6. NOVOLOG MIX 70/30 [Concomitant]
  7. ISOSORBIDE DINITRATE [Concomitant]
     Dosage: 40 MG
  8. ZOCOR [Concomitant]
     Dosage: 80 MG
  9. GABAPENTIN [Concomitant]
  10. CARVEDILOL [Concomitant]
     Dosage: 25 MG

REACTIONS (2)
  - HAEMORRHAGIC ANAEMIA [None]
  - INTERNATIONAL NORMALISED RATIO INCREASED [None]
